FAERS Safety Report 21521333 (Version 1)
Quarter: 2022Q4

REPORT INFORMATION
  Report Type: Spontaneous
  Country: RU (occurrence: None)
  Receive Date: 20221028
  Receipt Date: 20221028
  Transmission Date: 20230113
  Serious: Yes (Other)
  Sender: FDA-Public Use
  Company Number: RU-ROCHE-3208517

PATIENT
  Age: 62 Year
  Sex: Female

DRUGS (1)
  1. ATEZOLIZUMAB [Suspect]
     Active Substance: ATEZOLIZUMAB
     Indication: Lung neoplasm malignant
     Route: 041
     Dates: start: 201910

REACTIONS (2)
  - Neutropenia [Unknown]
  - Anaemia [Unknown]
